FAERS Safety Report 5878619-0 (Version None)
Quarter: 2008Q3

REPORT INFORMATION
  Report Type: 
  Country: None (occurrence: None)
  Receive Date: 20080909
  Receipt Date: 20080903
  Transmission Date: 20090109
  Serious: Yes (Death, Hospitalization)
  Sender: FDA-Public Use
  Company Number: CLOF-1000277

PATIENT
  Age: 75 Year
  Sex: Male

DRUGS (1)
  1. CLOFARABINE (CLOFARABINE) SOLUTION FOR INFUSION [Suspect]
     Indication: ACUTE LEUKAEMIA
     Dosage: INTRAVENOUS
     Route: 042
     Dates: start: 20080430

REACTIONS (4)
  - DIABETES MELLITUS [None]
  - RENAL FAILURE [None]
  - SEPSIS [None]
  - TUMOUR LYSIS SYNDROME [None]
